FAERS Safety Report 5155291-9 (Version None)
Quarter: 2006Q4

REPORT INFORMATION
  Report Type: 
  Country: None (occurrence: None)
  Receive Date: 20061121
  Receipt Date: 20061110
  Transmission Date: 20070319
  Serious: Yes (Hospitalization, Other)
  Sender: FDA-Public Use
  Company Number: US-AVENTIS-200619299US

PATIENT
  Age: 68 Year
  Sex: Female

DRUGS (3)
  1. LASIX [Suspect]
     Indication: OEDEMA PERIPHERAL
     Route: 048
  2. ALBUTEROL [Suspect]
     Indication: ASTHMA
     Dosage: DOSE: UNK
     Route: 055
  3. ALBUTEROL [Suspect]
     Dosage: DOSE: USED 8 TIMES IN PAST TWO HOURS
     Route: 055

REACTIONS (4)
  - DRUG INTERACTION [None]
  - OEDEMA PERIPHERAL [None]
  - RESPIRATORY DISTRESS [None]
  - VENTRICULAR TACHYCARDIA [None]
